FAERS Safety Report 9788099 (Version 1)
Quarter: 2013Q4

REPORT INFORMATION
  Report Type: Spontaneous
  Country: US (occurrence: None)
  Receive Date: 20131227
  Receipt Date: 20131227
  Transmission Date: 20140711
  Serious: Yes (Hospitalization)
  Sender: FDA-Public Use
  Company Number: None

PATIENT
  Age: 92 Year
  Sex: Male
  Weight: 110.5 kg

DRUGS (12)
  1. PRADAXA [Suspect]
     Indication: ATRIAL FIBRILLATION
     Route: 048
  2. TYLENOL [Concomitant]
  3. PRAVASTATIN [Concomitant]
  4. TAMSULOSIN [Concomitant]
  5. ENALAPRIL [Concomitant]
  6. CARVEDILOL [Concomitant]
  7. LASIS [Concomitant]
  8. AVODART [Concomitant]
  9. CITALOPRAM [Concomitant]
  10. LOVAZA [Concomitant]
  11. FERROUS SULFATE [Concomitant]
  12. MVI [Concomitant]

REACTIONS (2)
  - Haemorrhagic anaemia [None]
  - Laceration [None]
